FAERS Safety Report 9069188 (Version 2)
Quarter: 2013Q1

REPORT INFORMATION
  Report Type: Report from Study
  Country: NL (occurrence: NL)
  Receive Date: 20130129
  Receipt Date: 20130129
  Transmission Date: 20140127
  Serious: Yes (Death, Hospitalization)
  Sender: FDA-Public Use
  Company Number: NL-ELI_LILLY_AND_COMPANY-NL201301001045

PATIENT
  Age: 65 None
  Sex: Female
  Weight: 68.5 kg

DRUGS (7)
  1. PEMETREXED [Suspect]
     Indication: NEOPLASM MALIGNANT
     Dosage: 900 MG, ONCE PER THREE WEEKS
     Route: 042
     Dates: start: 20100608
  2. PEMETREXED [Suspect]
     Dosage: 900 MG, 1 DOSE EVERY THREE WEEKS
     Route: 042
     Dates: start: 20121025, end: 20121206
  3. BEVACIZUMAB [Suspect]
     Indication: NEOPLASM MALIGNANT
     Dosage: 525 MG, ONCE EVERY THREE WEEKS
     Route: 042
     Dates: start: 20100608
  4. BEVACIZUMAB [Suspect]
     Dosage: 525 MG, ONE DOSE EVERY THREE WEEKS
     Dates: start: 20121025, end: 20121206
  5. FOLIC ACID [Concomitant]
     Dosage: 5 MG, QD
     Dates: start: 20100527
  6. VITAMIN B12 [Concomitant]
     Dosage: 1000 UG, EVERY 9 WEEKS
     Dates: start: 20100527
  7. PARACETAMOL [Concomitant]
     Dosage: UNK, PRN
     Dates: start: 20100527

REACTIONS (2)
  - Vomiting [Fatal]
  - Nausea [Recovered/Resolved]
